FAERS Safety Report 15566836 (Version 1)
Quarter: 2018Q4

REPORT INFORMATION
  Report Type: Spontaneous
  Country: SG (occurrence: SG)
  Receive Date: 20181030
  Receipt Date: 20181030
  Transmission Date: 20190205
  Serious: Yes (Hospitalization)
  Sender: FDA-Public Use
  Company Number: SG-NORTHSTAR HEALTHCARE HOLDINGS-SG-2018NSR000151

PATIENT
  Age: 44 Year
  Sex: Female

DRUGS (2)
  1. ALLOPURINOL. [Suspect]
     Active Substance: ALLOPURINOL
     Indication: GOUT
     Dosage: UNK
  2. COLCHICINE. [Concomitant]
     Active Substance: COLCHICINE
     Indication: GOUT
     Dosage: UNK

REACTIONS (2)
  - Cytomegalovirus hepatitis [Unknown]
  - Drug reaction with eosinophilia and systemic symptoms [Unknown]
